FAERS Safety Report 11240119 (Version 2)
Quarter: 2015Q3

REPORT INFORMATION
  Report Type: Spontaneous
  Country: US (occurrence: US)
  Receive Date: 20150706
  Receipt Date: 20150727
  Transmission Date: 20151125
  Serious: No
  Sender: FDA-Public Use
  Company Number: US-BRISTOL-MYERS SQUIBB COMPANY-BMS-2015-043775

PATIENT
  Sex: Female

DRUGS (3)
  1. ELIQUIS [Suspect]
     Active Substance: APIXABAN
  2. ELIQUIS [Suspect]
     Active Substance: APIXABAN
     Indication: CEREBROVASCULAR ACCIDENT PROPHYLAXIS
     Dosage: 5 MG, BID
     Route: 065
     Dates: start: 201506
  3. FLECAINIDE [Suspect]
     Active Substance: FLECAINIDE
     Indication: ATRIAL FIBRILLATION
     Dosage: 50 MG, BID
     Route: 065

REACTIONS (10)
  - Oropharyngeal pain [Unknown]
  - Malaise [Unknown]
  - Heart rate increased [Unknown]
  - Mouth swelling [Unknown]
  - Dysphagia [Unknown]
  - Speech disorder [Unknown]
  - Sedation [Unknown]
  - Vertigo [Unknown]
  - Somnolence [Unknown]
  - Incorrect dose administered [Unknown]
